FAERS Safety Report 17534780 (Version 2)
Quarter: 2020Q2

REPORT INFORMATION
  Report Type: Spontaneous
  Country: LB (occurrence: LB)
  Receive Date: 20200312
  Receipt Date: 20200618
  Transmission Date: 20200713
  Serious: Yes (Death, Other)
  Sender: FDA-Public Use
  Company Number: LB-BAYER-2020-041270

PATIENT
  Age: 71 Year
  Sex: Female

DRUGS (2)
  1. AMIKACIN. [Concomitant]
     Active Substance: AMIKACIN
     Indication: MYCOBACTERIUM TUBERCULOSIS COMPLEX TEST POSITIVE
     Dosage: UNK
  2. MOXIFLOXACIN ORAL [Suspect]
     Active Substance: MOXIFLOXACIN
     Indication: MYCOBACTERIUM TUBERCULOSIS COMPLEX TEST POSITIVE
     Dosage: 400 MG, QD

REACTIONS (5)
  - Cardiac arrest [Fatal]
  - Product use in unapproved indication [None]
  - Sepsis [None]
  - Haemophagocytic lymphohistiocytosis [Fatal]
  - Off label use [None]
